FAERS Safety Report 4304070-0 (Version None)
Quarter: 2004Q1

REPORT INFORMATION
  Report Type: 
  Country: None (occurrence: None)
  Receive Date: 20040224
  Receipt Date: 20040211
  Transmission Date: 20041129
  Serious: Yes (Death, Hospitalization, Other)
  Sender: FDA-Public Use
  Company Number: 2004003342

PATIENT
  Age: 61 Year
  Sex: Male

DRUGS (6)
  1. DILANTIN [Suspect]
     Indication: CONVULSION
     Dosage: 100 MG (DAILY), ORAL
     Route: 048
     Dates: start: 20030313, end: 20040107
  2. BEFACT (THIAMINE, PYRIDOXINE, CYANOCOBALAMIN) [Concomitant]
  3. DIHYDROERGOTOXINE MESILATE (DIHYDROERGOTOXINE MESILATE) [Concomitant]
  4. LORATADINE [Concomitant]
  5. PREDNISONE [Concomitant]
  6. ALL OTHER THERAPEUTIC PRODUCTS [Concomitant]

REACTIONS (2)
  - CONVULSION [None]
  - TOXIC EPIDERMAL NECROLYSIS [None]
